FAERS Safety Report 8182277-2 (Version None)
Quarter: 2012Q1

REPORT INFORMATION
  Report Type: 
  Country: None (occurrence: None)
  Receive Date: 20120302
  Receipt Date: 20120227
  Transmission Date: 20120608
  Serious: Yes (Hospitalization)
  Sender: FDA-Public Use
  Company Number: PHHO2012US003482

PATIENT
  Sex: Female
  Weight: 84.354 kg

DRUGS (7)
  1. AFINITOR [Suspect]
     Indication: BREAST CANCER
     Dosage: 5 MG, QD
     Route: 048
     Dates: start: 20111117, end: 20120208
  2. CISPLATIN [Suspect]
     Indication: BREAST CANCER
     Dosage: 20 MG/M2, UNK
     Dates: start: 20111117, end: 20120202
  3. PREVACID [Concomitant]
     Dosage: 30 MG, QD
  4. PREDNISONE [Concomitant]
     Dosage: 10 MG, QD
  5. PACLITAXEL [Suspect]
     Indication: BREAST CANCER
     Dosage: 80 MG/M2, UNK
     Dates: start: 20111117, end: 20120202
  6. ALBUTEROL SULFATE [Concomitant]
     Dosage: 90 UG, PRN
  7. MAGNESIUM [Concomitant]
     Dosage: 500 MG, BID

REACTIONS (4)
  - PNEUMONIA [None]
  - LEUKOCYTOSIS [None]
  - URINARY TRACT INFECTION [None]
  - ANAEMIA [None]
